FAERS Safety Report 23992446 (Version 1)
Quarter: 2024Q2

REPORT INFORMATION
  Report Type: Spontaneous
  Country: US (occurrence: US)
  Receive Date: 20240620
  Receipt Date: 20240620
  Transmission Date: 20240716
  Serious: No
  Sender: FDA-Public Use
  Company Number: US-TEVA-VS-3200420

PATIENT
  Sex: Female

DRUGS (1)
  1. CABERGOLINE [Suspect]
     Active Substance: CABERGOLINE
     Indication: Product used for unknown indication
     Route: 065

REACTIONS (8)
  - Dizziness [Unknown]
  - Product quality issue [Unknown]
  - Product packaging issue [Unknown]
  - Adverse drug reaction [Unknown]
  - Headache [Unknown]
  - Rash [Unknown]
  - Anxiety [Unknown]
  - Product contamination physical [Unknown]
